FAERS Safety Report 4289396-1 (Version None)
Quarter: 2004Q1

REPORT INFORMATION
  Report Type: 
  Country: None (occurrence: None)
  Receive Date: 20040126
  Receipt Date: 20030925
  Transmission Date: 20041129
  Serious: No
  Sender: FDA-Public Use
  Company Number: USA030948338

PATIENT
  Age: 56 Year
  Sex: Female

DRUGS (3)
  1. FORTEO [Suspect]
     Dates: start: 20030611
  2. CALCIUM [Concomitant]
  3. MULTI-VITAMINS [Concomitant]

REACTIONS (3)
  - INSOMNIA [None]
  - MUSCLE CRAMP [None]
  - MYALGIA [None]
